FAERS Safety Report 8164250-3 (Version None)
Quarter: 2012Q1

REPORT INFORMATION
  Report Type: 
  Country: None (occurrence: None)
  Receive Date: 20120224
  Receipt Date: 20111122
  Transmission Date: 20120608
  Serious: No
  Sender: FDA-Public Use
  Company Number: US-ASTRAZENECA-2011SE66180

PATIENT
  Weight: 79.4 kg

DRUGS (1)
  1. VIMOVO [Suspect]
     Indication: ARTHRITIS
     Dosage: 375 + 20 MG ONCE
     Route: 048
     Dates: start: 20111013

REACTIONS (3)
  - GASTRIC DISORDER [None]
  - NAUSEA [None]
  - ABDOMINAL PAIN UPPER [None]
